FAERS Safety Report 21635370 (Version 1)
Quarter: 2022Q4

REPORT INFORMATION
  Report Type: Spontaneous
  Country: CN (occurrence: CN)
  Receive Date: 20221123
  Receipt Date: 20221123
  Transmission Date: 20230113
  Serious: Yes (Other)
  Sender: FDA-Public Use
  Company Number: CN-PFIZER INC-PV202200107214

PATIENT
  Age: 4 Year
  Sex: Female
  Weight: 20 kg

DRUGS (3)
  1. AZITHROMYCIN [Suspect]
     Active Substance: AZITHROMYCIN
     Indication: Otitis media
     Dosage: 0.2 G, 1X/DAY
     Route: 041
     Dates: start: 20221027, end: 20221027
  2. STERILE WATER [Concomitant]
     Active Substance: WATER
     Indication: Otitis media
     Dosage: 5 ML, 1X/DAY
     Route: 041
     Dates: start: 20221027, end: 20221027
  3. DEXTROSE [Concomitant]
     Active Substance: DEXTROSE
     Indication: Otitis media
     Dosage: 200 ML, 1X/DAY
     Route: 041
     Dates: start: 20221027, end: 20221027

REACTIONS (4)
  - Rash [Recovered/Resolved]
  - Pruritus [Recovered/Resolved]
  - Papule [Recovered/Resolved]
  - Off label use [Unknown]

NARRATIVE: CASE EVENT DATE: 20221027
